FAERS Safety Report 4933315-9 (Version None)
Quarter: 2006Q1

REPORT INFORMATION
  Report Type: 
  Country: None (occurrence: None)
  Receive Date: 20060306
  Receipt Date: 20060302
  Transmission Date: 20060701
  Serious: Yes (Death, Hospitalization)
  Sender: FDA-Public Use
  Company Number: NL-BRISTOL-MYERS SQUIBB COMPANY-13301411

PATIENT
  Age: 62 Year
  Sex: Male

DRUGS (4)
  1. CARBOPLATIN [Suspect]
     Indication: NON-SMALL CELL LUNG CANCER
     Route: 042
     Dates: start: 20060110, end: 20060110
  2. DOCETAXEL [Suspect]
     Indication: NON-SMALL CELL LUNG CANCER
     Route: 042
     Dates: start: 20060110, end: 20060110
  3. BLINDED: CELECOXIB [Suspect]
     Indication: NON-SMALL CELL LUNG CANCER
     Route: 048
     Dates: start: 20060110, end: 20060110
  4. BLINDED: PLACEBO [Suspect]

REACTIONS (5)
  - DRUG TOXICITY [None]
  - ENTERITIS [None]
  - MENINGITIS LISTERIA [None]
  - MUCOSAL INFLAMMATION [None]
  - NEUTROPENIA [None]
